FAERS Safety Report 4405236-1 (Version None)
Quarter: 2004Q3

REPORT INFORMATION
  Report Type: 
  Country: None (occurrence: None)
  Receive Date: 20040722
  Receipt Date: 20040722
  Transmission Date: 20050211
  Serious: Yes (Other)
  Sender: FDA-Public Use
  Company Number: None

PATIENT
  Age: 59 Year
  Sex: Female
  Weight: 88.4514 kg

DRUGS (4)
  1. VIOXX [Suspect]
     Indication: OSTEOARTHRITIS
     Dosage: 25 MG ONCE A DAY ORAL
     Route: 048
     Dates: start: 20020101, end: 20040717
  2. PROZAC [Concomitant]
  3. ROBOXITINE [Concomitant]
  4. LAMICTAL [Concomitant]

REACTIONS (5)
  - DIARRHOEA [None]
  - FATIGUE [None]
  - NAUSEA [None]
  - PAIN [None]
  - RESTLESSNESS [None]
